FAERS Safety Report 22084979 (Version 1)
Quarter: 2023Q1

REPORT INFORMATION
  Report Type: Spontaneous
  Country: US (occurrence: US)
  Receive Date: 20230310
  Receipt Date: 20230310
  Transmission Date: 20230418
  Serious: No
  Sender: FDA-Public Use
  Company Number: US-PFIZER INC-202300101926

PATIENT
  Age: 48 Year
  Sex: Male

DRUGS (2)
  1. NURTEC ODT [Suspect]
     Active Substance: RIMEGEPANT SULFATE
     Dosage: UNK
  2. AJOVY [Concomitant]
     Active Substance: FREMANEZUMAB-VFRM
     Indication: Migraine
     Dosage: UNK

REACTIONS (5)
  - Nausea [Unknown]
  - Feeling abnormal [Unknown]
  - Nightmare [Unknown]
  - Abnormal dreams [Unknown]
  - Somnolence [Unknown]
